FAERS Safety Report 17043839 (Version 1)
Quarter: 2019Q4

REPORT INFORMATION
  Report Type: Spontaneous
  Country: FR (occurrence: FR)
  Receive Date: 20191118
  Receipt Date: 20191118
  Transmission Date: 20200122
  Serious: Yes (Life-Threatening, Hospitalization)
  Sender: FDA-Public Use
  Company Number: FR-PFIZER INC-2019492620

PATIENT
  Age: 24 Year
  Sex: Female

DRUGS (3)
  1. XANAX [Suspect]
     Active Substance: ALPRAZOLAM
     Indication: SUICIDE ATTEMPT
     Dosage: 100 DF, SINGLE
     Route: 048
     Dates: start: 20191008, end: 20191008
  2. ALCOOL [Suspect]
     Active Substance: ALCOHOL
     Dosage: UNK
     Dates: start: 20191008, end: 20191008
  3. FLUOXETINE [Suspect]
     Active Substance: FLUOXETINE HYDROCHLORIDE
     Indication: SUICIDE ATTEMPT
     Dosage: 100 DF, SINGLE
     Route: 048
     Dates: start: 20191008, end: 20191008

REACTIONS (3)
  - Somnolence [Recovered/Resolved]
  - Intentional overdose [Recovered/Resolved]
  - Suicide attempt [Recovered/Resolved]

NARRATIVE: CASE EVENT DATE: 20191008
